FAERS Safety Report 24704826 (Version 2)
Quarter: 2024Q4

REPORT INFORMATION
  Report Type: Spontaneous
  Country: AU (occurrence: AU)
  Receive Date: 20241206
  Receipt Date: 20241218
  Transmission Date: 20250115
  Serious: Yes (Disabling, Other)
  Sender: RECKITT BENCKISER
  Company Number: AU-PROD-AS2-212756134-20-24-AUS-RB-0013132

PATIENT
  Age: 30 Year
  Sex: Female

DRUGS (1)
  1. DETTOL (CHLOROXYLENOL) [Suspect]
     Active Substance: CHLOROXYLENOL
     Indication: Infection prophylaxis
     Dosage: UNKNOWN
     Route: 065
     Dates: start: 202408

REACTIONS (6)
  - Chemical burn of skin [Recovering/Resolving]
  - Skin hyperpigmentation [Not Recovered/Not Resolved]
  - Skin exfoliation [Not Recovered/Not Resolved]
  - Impaired work ability [Not Recovered/Not Resolved]
  - Pain [Not Recovered/Not Resolved]
  - Scab [Recovering/Resolving]

NARRATIVE: CASE EVENT DATE: 20240805
